FAERS Safety Report 22332965 (Version 1)
Quarter: 2023Q2

REPORT INFORMATION
  Report Type: Spontaneous
  Country: US (occurrence: None)
  Receive Date: 20230516
  Receipt Date: 20230516
  Transmission Date: 20230722
  Serious: Yes (Hospitalization)
  Sender: FDA-Public Use
  Company Number: None

PATIENT
  Age: 48 Year
  Sex: Male

DRUGS (1)
  1. HUMIRA [Suspect]
     Active Substance: ADALIMUMAB
     Indication: Uveitis
     Dosage: OTHER FREQUENCY : Q 14DAYS;?
     Route: 058
     Dates: start: 20210309

REACTIONS (4)
  - Illness [None]
  - Acute kidney injury [None]
  - Hereditary disorder [None]
  - Therapy cessation [None]

NARRATIVE: CASE EVENT DATE: 20230420
